FAERS Safety Report 6211349-4 (Version None)
Quarter: 2009Q2

REPORT INFORMATION
  Report Type: 
  Country: None (occurrence: None)
  Receive Date: 20090528
  Receipt Date: 20090513
  Transmission Date: 20091009
  Serious: Yes (Other)
  Sender: FDA-Public Use
  Company Number: CIP09001037

PATIENT
  Sex: Female

DRUGS (4)
  1. ACTONEL [Suspect]
     Indication: OSTEITIS DEFORMANS
     Dosage: 17.5 MG, 1 /WEEK; 17.5 MG ONCE WEEKLY, ORAL
     Route: 048
     Dates: end: 20090403
  2. ACTONEL [Suspect]
     Indication: OSTEITIS DEFORMANS
     Dosage: 17.5 MG, 1 /WEEK; 17.5 MG ONCE WEEKLY, ORAL
     Route: 048
     Dates: start: 20090406, end: 20090408
  3. ALFAROL (ALFACALCIDOL) [Concomitant]
  4. CALCIUM (CALCIUM) [Concomitant]

REACTIONS (4)
  - BLOOD CALCIUM DECREASED [None]
  - HYPOAESTHESIA [None]
  - HYPOCALCAEMIA [None]
  - TETANY [None]
